FAERS Safety Report 17657081 (Version 1)
Quarter: 2020Q2

REPORT INFORMATION
  Report Type: Report from Study
  Country: ES (occurrence: ES)
  Receive Date: 20200410
  Receipt Date: 20200410
  Transmission Date: 20200713
  Serious: Yes (Death)
  Sender: FDA-Public Use
  Company Number: ES-BAYER-2020-055592

PATIENT
  Sex: Male

DRUGS (1)
  1. BETAFERON [Suspect]
     Active Substance: INTERFERON BETA-1B
     Indication: MULTIPLE SCLEROSIS
     Dosage: 1 ML, QOD
     Route: 058
     Dates: start: 20140303, end: 20200105

REACTIONS (1)
  - Infarction [Fatal]

NARRATIVE: CASE EVENT DATE: 20200105
